FAERS Safety Report 8503592 (Version 3)
Quarter: 2012Q4

REPORT INFORMATION
  Report Type: Spontaneous
  Country: US (occurrence: None)
  Receive Date: 20120403
  Receipt Date: 20121023
  Transmission Date: 20130627
  Serious: Yes (Hospitalization, Other)
  Sender: FDA-Public Use
  Company Number: ADR-2012-00469

PATIENT
  Sex: Female

DRUGS (3)
  1. LIORESAL [Suspect]
     Indication: PAIN
  2. MORPHINE [Concomitant]
  3. CLONIDINE INTRATHECAL [Concomitant]

REACTIONS (7)
  - Osteomyelitis [None]
  - Inadequate analgesia [None]
  - Suture related complication [None]
  - Allergy to metals [None]
  - Implant site infection [None]
  - Staphylococcus test positive [None]
  - Paralysis [None]
